FAERS Safety Report 16651569 (Version 1)
Quarter: 2019Q3

REPORT INFORMATION
  Report Type: Report from Study
  Country: GB (occurrence: GB)
  Receive Date: 20190731
  Receipt Date: 20190731
  Transmission Date: 20191004
  Serious: Yes (Hospitalization)
  Sender: FDA-Public Use
  Company Number: GB-MYLANLABS-2019M1071134

PATIENT
  Age: 77 Year
  Sex: Male

DRUGS (7)
  1. FOLIC ACID. [Concomitant]
     Active Substance: FOLIC ACID
     Dosage: 5 MG,UNK
     Route: 048
     Dates: start: 2014, end: 20151110
  2. SALBUTAMOL [Concomitant]
     Active Substance: ALBUTEROL
     Dosage: 100 UG,UNK
     Route: 048
     Dates: start: 2005
  3. RAMIPRIL. [Suspect]
     Active Substance: RAMIPRIL
     Indication: PRODUCT USED FOR UNKNOWN INDICATION
     Dosage: 1.25 MG,UNK
     Route: 048
     Dates: start: 2005, end: 20151110
  4. RANITIDINE. [Concomitant]
     Active Substance: RANITIDINE
     Dosage: 150 MG,UNK
     Route: 048
     Dates: start: 2015, end: 20151125
  5. CALCEOS [Concomitant]
     Active Substance: CALCIUM CARBONATE\CHOLECALCIFEROL
     Dosage: 500 MG,UNK
     Route: 048
     Dates: start: 20150731
  6. SIMVASTATIN. [Concomitant]
     Active Substance: SIMVASTATIN
     Dosage: 40 MG,UNK
     Route: 048
     Dates: start: 2012
  7. MAGNESIUM ALGINATE W/SODIUM ALGINATE [Concomitant]
     Active Substance: MAGNESIUM ALGINATE\SODIUM ALGINATE
     Dosage: 5 ML,UNK
     Route: 048
     Dates: start: 2015

REACTIONS (1)
  - Fall [Recovered/Resolved]

NARRATIVE: CASE EVENT DATE: 20151110
